FAERS Safety Report 6122691-X (Version None)
Quarter: 2009Q1

REPORT INFORMATION
  Report Type: 
  Country: None (occurrence: None)
  Receive Date: 20090318
  Receipt Date: 20081231
  Transmission Date: 20090719
  Serious: Yes (Other)
  Sender: FDA-Public Use
  Company Number: GB-PFIZER INC-2009150508

PATIENT

DRUGS (2)
  1. GABAPENTIN [Suspect]
     Indication: NECK PAIN
     Route: 048
     Dates: start: 20070901, end: 20080901
  2. NAPROXEN [Concomitant]
     Indication: PAIN
     Dosage: 500 MG, 2X/DAY
     Route: 048

REACTIONS (4)
  - FACIAL PARESIS [None]
  - MUSCULAR WEAKNESS [None]
  - PARAESTHESIA [None]
  - THROAT TIGHTNESS [None]
